FAERS Safety Report 20283258 (Version 1)
Quarter: 2022Q1

REPORT INFORMATION
  Report Type: Spontaneous
  Country: US (occurrence: None)
  Receive Date: 20220103
  Receipt Date: 20220103
  Transmission Date: 20220423
  Serious: Yes (Other)
  Sender: FDA-Public Use
  Company Number: None

PATIENT
  Age: 33 Year
  Sex: Female
  Weight: 76.2 kg

DRUGS (10)
  1. BAMLANIVIMAB [Suspect]
     Active Substance: BAMLANIVIMAB
     Indication: SARS-CoV-2 test positive
     Dosage: OTHER FREQUENCY : ONCE;?
     Route: 042
     Dates: start: 20211230, end: 20211230
  2. ETESEVIMAB [Suspect]
     Active Substance: ETESEVIMAB
     Indication: SARS-CoV-2 test positive
     Dosage: OTHER FREQUENCY : ONCE;?
     Route: 042
     Dates: start: 20211230, end: 20211230
  3. ACETAMINOPHEN [Concomitant]
     Active Substance: ACETAMINOPHEN
  4. ASPIRIN [Concomitant]
     Active Substance: ASPIRIN
  5. CITALOPRAM [Concomitant]
     Active Substance: CITALOPRAM HYDROBROMIDE
  6. INDOMETHACIN [Concomitant]
     Active Substance: INDOMETHACIN
  7. INSULIN NOS [Concomitant]
     Active Substance: INSULIN NOS
  8. ONDANSETRON [Concomitant]
     Active Substance: ONDANSETRON
  9. VITAMINS [Concomitant]
     Active Substance: VITAMINS
  10. DOCUSATE SODIUM\SENNOSIDES [Concomitant]
     Active Substance: DOCUSATE SODIUM\SENNOSIDES

REACTIONS (6)
  - Infusion related reaction [None]
  - Abdominal pain [None]
  - Dyspnoea [None]
  - Chest pain [None]
  - Headache [None]
  - Ageusia [None]

NARRATIVE: CASE EVENT DATE: 20211230
